FAERS Safety Report 10565106 (Version 3)
Quarter: 2015Q2

REPORT INFORMATION
  Report Type: Spontaneous
  Country: FR (occurrence: FR)
  Receive Date: 20141105
  Receipt Date: 20150626
  Transmission Date: 20150821
  Serious: Yes (Death)
  Sender: FDA-Public Use
  Company Number: FR-BIOGENIDEC-2014BI112269

PATIENT
  Sex: Female

DRUGS (1)
  1. TECFIDERA [Suspect]
     Active Substance: DIMETHYL FUMARATE

REACTIONS (4)
  - Intentional product misuse [Fatal]
  - Intentional overdose [Fatal]
  - Completed suicide [Fatal]
  - Alcohol poisoning [Fatal]
